FAERS Safety Report 9198798 (Version 1)
Quarter: 2013Q1

REPORT INFORMATION
  Report Type: Report from Study
  Country: US (occurrence: US)
  Receive Date: 20130329
  Receipt Date: 20130329
  Transmission Date: 20140127
  Serious: Yes (Other)
  Sender: FDA-Public Use
  Company Number: US-ABBOTT-13P-163-1047755-00

PATIENT
  Age: 57 Year
  Sex: Female
  Weight: 84.9 kg

DRUGS (8)
  1. HUMIRA [Suspect]
     Indication: PSORIATIC ARTHROPATHY
     Dates: start: 2009, end: 201302
  2. NEFAZODONE [Concomitant]
     Indication: DEPRESSION
  3. DOXEPIN [Concomitant]
     Indication: DEPRESSION
  4. NORCO [Concomitant]
     Indication: PAIN
  5. OMEPRAZOLE [Concomitant]
     Indication: GASTROOESOPHAGEAL REFLUX DISEASE
  6. CARISIPRODOL [Concomitant]
     Indication: BACK PAIN
  7. SUMATRIPTAN [Concomitant]
     Indication: MIGRAINE
  8. RETIN A [Concomitant]
     Indication: PRODUCT USED FOR UNKNOWN INDICATION

REACTIONS (5)
  - Rotator cuff syndrome [Recovered/Resolved]
  - Rotator cuff syndrome [Recovered/Resolved]
  - Fall [Recovered/Resolved]
  - Joint injury [Not Recovered/Not Resolved]
  - Arthralgia [Not Recovered/Not Resolved]
